FAERS Safety Report 6086525-4 (Version None)
Quarter: 2009Q1

REPORT INFORMATION
  Report Type: 
  Country: None (occurrence: None)
  Receive Date: 20090213
  Receipt Date: 20090128
  Transmission Date: 20090719
  Serious: No
  Sender: FDA-Public Use
  Company Number: B0558027A

PATIENT
  Sex: 0

DRUGS (1)
  1. MELPHALAN (FORMULATION UNKNOWN) (GENERIC) (MELPHALAN) [Suspect]
     Indication: MALIGNANT MELANOMA

REACTIONS (2)
  - AMPUTATION [None]
  - DRUG TOXICITY [None]
